FAERS Safety Report 6708718-2 (Version None)
Quarter: 2010Q2

REPORT INFORMATION
  Report Type: 
  Country: None (occurrence: None)
  Receive Date: 20100503
  Receipt Date: 20090128
  Transmission Date: 20101027
  Serious: Yes (Other)
  Sender: FDA-Public Use
  Company Number: IT-BAYER-200929840GPV

PATIENT
  Age: 31 Year
  Sex: Female

DRUGS (1)
  1. ASPIRIN [Suspect]
     Indication: THROMBOSIS PROPHYLAXIS
     Dosage: TOTAL DAILY DOSE: 500 MG
     Route: 048
     Dates: start: 20081101, end: 20081114

REACTIONS (2)
  - LYMPHADENOPATHY [None]
  - RASH [None]
